FAERS Safety Report 13057231 (Version 6)
Quarter: 2017Q4

REPORT INFORMATION
  Report Type: Report from Study
  Country: JP (occurrence: JP)
  Receive Date: 20161223
  Receipt Date: 20171107
  Transmission Date: 20180320
  Serious: Yes (Hospitalization, Other)
  Sender: FDA-Public Use
  Company Number: JP-BRISTOL-MYERS SQUIBB COMPANY-BMS-2016-071138

PATIENT
  Age: 63 Year
  Sex: Male

DRUGS (2)
  1. NIVOLUMAB [Suspect]
     Active Substance: NIVOLUMAB
     Indication: NON-SMALL CELL LUNG CANCER
     Dosage: 3 MG/KG, UNK
     Route: 041
     Dates: start: 20160325, end: 20170405
  2. RANMARK [Concomitant]
     Active Substance: DENOSUMAB
     Indication: PRODUCT USED FOR UNKNOWN INDICATION
     Dosage: UNK
     Route: 065
     Dates: end: 20170405

REACTIONS (17)
  - Thyroiditis [Recovering/Resolving]
  - Gastroenteritis [Recovering/Resolving]
  - Tooth fracture [Recovering/Resolving]
  - Hypophysitis [Not Recovered/Not Resolved]
  - Inappropriate schedule of drug administration [Unknown]
  - Cholangitis [Recovering/Resolving]
  - Autoimmune colitis [Recovered/Resolved]
  - Hyperthyroidism [Recovering/Resolving]
  - Endoscopic retrograde cholangiopancreatography [Unknown]
  - Hypothyroidism [Recovering/Resolving]
  - Lacrimation increased [Recovering/Resolving]
  - Adrenal insufficiency [Recovering/Resolving]
  - Cardiac failure high output [Recovered/Resolved]
  - Pleural effusion [Recovering/Resolving]
  - Abdominal pain upper [Recovering/Resolving]
  - Cholangitis acute [Recovering/Resolving]
  - Tooth extraction [Unknown]

NARRATIVE: CASE EVENT DATE: 20160405
